FAERS Safety Report 18701090 (Version 1)
Quarter: 2021Q1

REPORT INFORMATION
  Report Type: Spontaneous
  Country: IT (occurrence: IT)
  Receive Date: 20210105
  Receipt Date: 20210105
  Transmission Date: 20210419
  Serious: Yes (Hospitalization)
  Sender: FDA-Public Use
  Company Number: IT-ACCORD-213390

PATIENT
  Age: 90 Year
  Sex: Female

DRUGS (9)
  1. FUROSEMIDE. [Suspect]
     Active Substance: FUROSEMIDE
     Indication: HYPERTENSION
     Route: 048
  2. LUCEN [Concomitant]
     Active Substance: ESOMEPRAZOLE
     Dosage: STRENGTH: 40 MG
     Route: 048
  3. ATORVASTATIN [Concomitant]
     Active Substance: ATORVASTATIN
     Route: 048
  4. LANOXIN [Interacting]
     Active Substance: DIGOXIN
     Indication: ATRIAL FIBRILLATION
     Dosage: STRENGTH: 0.125 MG
     Route: 048
  5. CLARITHROMYCIN/CLARITHROMYCIN LACTOBIONATE [Interacting]
     Active Substance: CLARITHROMYCIN LACTOBIONATE
     Indication: EAR INFECTION
     Route: 048
     Dates: start: 20201110, end: 20201117
  6. BISOPROLOL [Concomitant]
     Active Substance: BISOPROLOL
     Indication: HYPERTENSION
  7. CEFIXORAL [Concomitant]
     Active Substance: CEFIXIME
     Indication: EAR INFECTION
     Dosage: STRENGTH: 400 MG
     Route: 048
     Dates: start: 20201110, end: 20201117
  8. EUTIROX [Concomitant]
     Active Substance: LEVOTHYROXINE SODIUM
     Indication: HYPOTHYROIDISM
     Dosage: STRENGTH: 25 MICROGRAMS
     Route: 048
  9. LIXIANA [Concomitant]
     Active Substance: EDOXABAN TOSYLATE
     Indication: ATRIAL FIBRILLATION
     Dosage: STRENGTH: 30 MG
     Route: 048

REACTIONS (4)
  - Drug interaction [Unknown]
  - Cardioactive drug level increased [Recovered/Resolved]
  - Disorientation [Recovered/Resolved]
  - Confusional state [Recovered/Resolved]

NARRATIVE: CASE EVENT DATE: 20201124
